FAERS Safety Report 10516785 (Version 4)
Quarter: 2015Q1

REPORT INFORMATION
  Report Type: Report from Study
  Country: JP (occurrence: JP)
  Receive Date: 20141014
  Receipt Date: 20150217
  Transmission Date: 20150720
  Serious: Yes (Other)
  Sender: FDA-Public Use
  Company Number: JP-GLAXOSMITHKLINE-JP2014JPN000431

PATIENT
  Age: 76 Year
  Sex: Female
  Weight: 70 kg

DRUGS (18)
  1. PREDNISOLONE. [Suspect]
     Active Substance: PREDNISOLONE
     Dosage: UNK UNK, BID
     Route: 048
     Dates: start: 20140416, end: 20140513
  2. LIVALO OD [Concomitant]
     Indication: LIPID METABOLISM DISORDER
     Dosage: 1 MG, QD
     Route: 048
     Dates: start: 20131211
  3. JANUVIA [Concomitant]
     Active Substance: SITAGLIPTIN PHOSPHATE
     Indication: DIABETES MELLITUS
     Dosage: 50 MG, QD
     Dates: start: 20140122
  4. PREDNISOLONE. [Suspect]
     Active Substance: PREDNISOLONE
     Dosage: UNK UNK, BID
     Route: 048
     Dates: start: 20131225, end: 20140121
  5. PREDNISOLONE. [Suspect]
     Active Substance: PREDNISOLONE
     Dosage: UNK UNK, BID
     Route: 048
     Dates: start: 20140219, end: 20140318
  6. ATOVAQUONE. [Suspect]
     Active Substance: ATOVAQUONE
     Indication: ANTIFUNGAL PROPHYLAXIS
     Dosage: 10 ML, QD
     Route: 048
     Dates: start: 20131211, end: 20140513
  7. PREDNISOLONE. [Suspect]
     Active Substance: PREDNISOLONE
     Dosage: UNK UNK, BID
     Route: 048
     Dates: start: 20140122, end: 20140218
  8. PREDNISOLONE. [Suspect]
     Active Substance: PREDNISOLONE
     Dosage: UNK UNK, BID
     Route: 048
     Dates: start: 20140319, end: 20140415
  9. MAGMITT [Concomitant]
     Active Substance: MAGNESIUM OXIDE
     Indication: GASTROOESOPHAGEAL REFLUX DISEASE
     Dosage: 500 MG, TID
     Route: 048
     Dates: start: 20131031
  10. PREDNISOLONE. [Suspect]
     Active Substance: PREDNISOLONE
     Indication: POLYMYOSITIS
     Dosage: UNK UNK, TID
     Route: 048
     Dates: start: 20131027, end: 20131113
  11. AMOBAN [Concomitant]
     Active Substance: ZOPICLONE
     Indication: INSOMNIA
     Dosage: 7.5 MG, QD
     Route: 048
     Dates: start: 20131031, end: 20140218
  12. PREDNISOLONE. [Suspect]
     Active Substance: PREDNISOLONE
     Dosage: UNK UNK, BID
     Route: 048
     Dates: start: 20131114, end: 20131120
  13. PREDNISOLONE. [Suspect]
     Active Substance: PREDNISOLONE
     Dosage: UNK UNK, BID
     Route: 048
     Dates: start: 20131127, end: 201312
  14. BAKTAR [Concomitant]
     Active Substance: SULFAMETHOXAZOLE\TRIMETHOPRIM
     Indication: ANTIFUNGAL PROPHYLAXIS
     Dosage: 1 DF, QD
     Route: 048
     Dates: start: 20131105, end: 20131121
  15. PREDNISOLONE. [Suspect]
     Active Substance: PREDNISOLONE
     Dosage: UNK UNK, BID
     Route: 048
     Dates: start: 20131121, end: 20131126
  16. PREDNISOLONE. [Suspect]
     Active Substance: PREDNISOLONE
     Dosage: UNK UNK, BID
     Route: 048
     Dates: start: 20131211, end: 20131224
  17. PROGRAF [Suspect]
     Active Substance: TACROLIMUS\TACROLIMUS ANHYDROUS
     Dosage: 2 MG, BID
     Route: 048
     Dates: start: 20131027
  18. PARIET [Concomitant]
     Active Substance: RABEPRAZOLE SODIUM
     Indication: GASTROOESOPHAGEAL REFLUX DISEASE
     Dosage: 10 MG, QD
     Route: 048
     Dates: start: 20131027

REACTIONS (2)
  - Muscle spasms [Not Recovered/Not Resolved]
  - Diabetes mellitus [Not Recovered/Not Resolved]

NARRATIVE: CASE EVENT DATE: 20140122
